FAERS Safety Report 4756623-3 (Version None)
Quarter: 2005Q3

REPORT INFORMATION
  Report Type: 
  Country: None (occurrence: None)
  Receive Date: 20050830
  Receipt Date: 20050727
  Transmission Date: 20060218
  Serious: Yes (Other)
  Sender: FDA-Public Use
  Company Number: PHBS2005AT10926

PATIENT
  Age: 71 Year
  Sex: Male

DRUGS (8)
  1. ZOMETA [Suspect]
     Indication: MULTIPLE MYELOMA
     Dosage: 4 MG EVERY 4 TO 6 WEEKS
     Route: 042
     Dates: start: 20030501, end: 20050801
  2. PAMIDRONATE DISODIUM [Suspect]
     Dosage: 90 MG/D
     Route: 065
  3. THALIDOMIDE [Concomitant]
     Dosage: 300 MG/D
     Route: 065
     Dates: start: 20030501, end: 20040101
  4. ARANESP [Concomitant]
     Dosage: 150 UG/D
     Route: 065
  5. FORTECORTIN [Concomitant]
     Dosage: 40 MG/D
     Route: 065
     Dates: start: 20030501, end: 20040101
  6. INTRON A [Concomitant]
     Route: 065
     Dates: start: 20040901
  7. ALKERAN [Concomitant]
     Route: 065
     Dates: start: 20050301
  8. VELCADE [Concomitant]
     Route: 065
     Dates: start: 20050401, end: 20050701

REACTIONS (3)
  - ASEPTIC NECROSIS BONE [None]
  - JAW OPERATION [None]
  - OSTEONECROSIS [None]
